FAERS Safety Report 13414481 (Version 2)
Quarter: 2017Q2

REPORT INFORMATION
  Report Type: Spontaneous
  Country: US (occurrence: US)
  Receive Date: 20170406
  Receipt Date: 20170606
  Transmission Date: 20170830
  Serious: Yes (Other)
  Sender: FDA-Public Use
  Company Number: US-BEH-2017079363

PATIENT
  Age: 63 Year
  Sex: Female

DRUGS (1)
  1. HIZENTRA [Suspect]
     Active Substance: HUMAN IMMUNOGLOBULIN G
     Indication: IMMUNODEFICIENCY COMMON VARIABLE
     Dosage: 2 G, QW
     Route: 058
     Dates: start: 20141220

REACTIONS (3)
  - Syringomyelia [Recovered/Resolved]
  - Infected cyst [Recovered/Resolved]
  - Spinal cord drainage [Recovered/Resolved]

NARRATIVE: CASE EVENT DATE: 20170314
